FAERS Safety Report 21720243 (Version 1)
Quarter: 2022Q4

REPORT INFORMATION
  Report Type: Spontaneous
  Country: US (occurrence: US)
  Receive Date: 20221213
  Receipt Date: 20221213
  Transmission Date: 20230113
  Serious: Yes (Other)
  Sender: FDA-Public Use
  Company Number: US-SA-SAC20221212000922

PATIENT
  Sex: Male

DRUGS (2)
  1. ALPROLIX [Suspect]
     Active Substance: EFTRENONACOG ALFA
     Indication: Haemorrhage
     Dosage: 8400 IU, ONCE WEEKLY FOR PROPHY, LAXIS DOSING AND DAILY
     Route: 042
  2. ALPROLIX [Suspect]
     Active Substance: EFTRENONACOG ALFA
     Indication: Haemorrhage
     Dosage: 8400 IU, ONCE WEEKLY FOR PROPHY, LAXIS DOSING AND DAILY
     Route: 042

REACTIONS (3)
  - Haemorrhage [Unknown]
  - Swelling [Unknown]
  - Drug tolerance [Unknown]

NARRATIVE: CASE EVENT DATE: 20220101
